FAERS Safety Report 9162226 (Version 1)
Quarter: 2013Q1

REPORT INFORMATION
  Report Type: Spontaneous
  Country: BR (occurrence: BR)
  Receive Date: 20130314
  Receipt Date: 20130314
  Transmission Date: 20140127
  Serious: Yes (Other)
  Sender: FDA-Public Use
  Company Number: PHHY2012BR067012

PATIENT
  Sex: Female

DRUGS (6)
  1. DIOVAN TRIPLE [Suspect]
     Indication: HYPERTENSION
     Dosage: 1 DF(160/5/12.5 MG), DAILY
  2. RIVOTRIL [Concomitant]
     Indication: DEPRESSION
     Dosage: 2 MG, BID (MORNING + NIGHT)
  3. ORGANONEURO CEREBRAL [Concomitant]
     Indication: MEMORY IMPAIRMENT
     Dosage: 1 DF, BID
     Route: 048
  4. LABIRIN [Concomitant]
     Indication: LABYRINTHITIS
     Dosage: UNK UKN, UNK
  5. SIMVASTATIN [Concomitant]
     Indication: BLOOD CHOLESTEROL
     Dosage: 40 MG, DAILY
     Route: 048
  6. PANTOPRAZOL [Concomitant]
     Indication: ABDOMINAL DISCOMFORT
     Dosage: 40 MG, DAILY
     Route: 048

REACTIONS (5)
  - Diabetes mellitus [Recovering/Resolving]
  - Blood glucose increased [Recovering/Resolving]
  - Hypotension [Not Recovered/Not Resolved]
  - Feeling cold [Unknown]
  - Local swelling [Not Recovered/Not Resolved]
